FAERS Safety Report 4297299-1 (Version None)
Quarter: 2004Q1

REPORT INFORMATION
  Report Type: 
  Country: None (occurrence: None)
  Receive Date: 20040218
  Receipt Date: 20040212
  Transmission Date: 20041129
  Serious: Yes (Hospitalization)
  Sender: FDA-Public Use
  Company Number: 200411995GDDC

PATIENT
  Age: 82 Year
  Sex: Male

DRUGS (1)
  1. UNKNOWN DRUG [Suspect]
     Indication: ESSENTIAL HYPERTENSION
     Dosage: DOSE: CODE NOT BROKEN
     Dates: start: 20010727, end: 20040113

REACTIONS (13)
  - ANAEMIA [None]
  - ATRIAL FIBRILLATION [None]
  - BLOOD URIC ACID INCREASED [None]
  - CARDIAC FAILURE [None]
  - CONDITION AGGRAVATED [None]
  - DYSPNOEA [None]
  - FATIGUE [None]
  - ISCHAEMIC STROKE [None]
  - LEUKOPENIA [None]
  - MYOCARDIAL ISCHAEMIA [None]
  - OEDEMA PERIPHERAL [None]
  - PLEURAL EFFUSION [None]
  - PULMONARY CONGESTION [None]
